FAERS Safety Report 19853113 (Version 1)
Quarter: 2021Q3

REPORT INFORMATION
  Report Type: Spontaneous
  Country: US (occurrence: US)
  Receive Date: 20210919
  Receipt Date: 20210919
  Transmission Date: 20211014
  Serious: No
  Sender: FDA-Public Use
  Company Number: US-SA-2021SA303330

PATIENT
  Age: 38 Year
  Sex: Female

DRUGS (2)
  1. DUPIXENT [Suspect]
     Active Substance: DUPILUMAB
     Indication: NASAL POLYPS
  2. DUPIXENT [Suspect]
     Active Substance: DUPILUMAB
     Indication: ASTHMA
     Dosage: 600 MG, 1X
     Dates: start: 20210903, end: 20210903

REACTIONS (4)
  - Injection site pruritus [Unknown]
  - Sensation of foreign body [Recovered/Resolved]
  - Swollen tongue [Recovered/Resolved]
  - Injection site urticaria [Unknown]

NARRATIVE: CASE EVENT DATE: 202109
